FAERS Safety Report 14442088 (Version 1)
Quarter: 2018Q1

REPORT INFORMATION
  Report Type: Spontaneous
  Country: FR (occurrence: FR)
  Receive Date: 20180125
  Receipt Date: 20180125
  Transmission Date: 20180509
  Serious: Yes (Hospitalization)
  Sender: FDA-Public Use
  Company Number: FR-ELI_LILLY_AND_COMPANY-FR201801006574

PATIENT
  Age: 35 Year
  Sex: Male

DRUGS (4)
  1. BUPRENORPHINE. [Suspect]
     Active Substance: BUPRENORPHINE
     Indication: DRUG WITHDRAWAL MAINTENANCE THERAPY
     Dosage: 16 MG, DAILY
     Route: 048
  2. ZYPREXA [Suspect]
     Active Substance: OLANZAPINE
     Indication: DRUG USE DISORDER
     Dosage: 20 MG, DAILY
     Route: 065
  3. OXAZEPAM. [Suspect]
     Active Substance: OXAZEPAM
     Indication: PRODUCT USED FOR UNKNOWN INDICATION
     Dosage: 40 MG, UNKNOWN
     Route: 065
  4. BROMAZEPAM [Suspect]
     Active Substance: BROMAZEPAM
     Indication: PRODUCT USED FOR UNKNOWN INDICATION
     Dosage: 24 MG, UNKNOWN
     Route: 065

REACTIONS (3)
  - Off label use [Unknown]
  - Withdrawal syndrome [Recovered/Resolved]
  - Drug use disorder [Not Recovered/Not Resolved]

NARRATIVE: CASE EVENT DATE: 20150522
